FAERS Safety Report 18142098 (Version 3)
Quarter: 2021Q3

REPORT INFORMATION
  Report Type: Spontaneous
  Country: FR (occurrence: FR)
  Receive Date: 20200812
  Receipt Date: 20210902
  Transmission Date: 20211014
  Serious: Yes (Hospitalization)
  Sender: FDA-Public Use
  Company Number: FR-EISAI MEDICAL RESEARCH-EC-2020-078596

PATIENT
  Age: 53 Year
  Sex: Female
  Weight: 88 kg

DRUGS (2)
  1. HALAVEN [Suspect]
     Active Substance: ERIBULIN MESYLATE
     Indication: BREAST CANCER METASTATIC
     Dosage: DOSAGE UNKNOWN
     Route: 041
     Dates: start: 202005, end: 2020
  2. HALAVEN [Suspect]
     Active Substance: ERIBULIN MESYLATE
     Route: 041
     Dates: start: 20200721, end: 20200721

REACTIONS (5)
  - Nausea [Unknown]
  - Weight decreased [Unknown]
  - Thirst [Unknown]
  - Hyperglycaemia [Unknown]
  - Decreased appetite [Unknown]

NARRATIVE: CASE EVENT DATE: 20200723
